FAERS Safety Report 8546307-8 (Version None)
Quarter: 2012Q3

REPORT INFORMATION
  Report Type: 
  Country: None (occurrence: None)
  Receive Date: 20120727
  Receipt Date: 20111213
  Transmission Date: 20120928
  Serious: No
  Sender: FDA-Public Use
  Company Number: US-ASTRAZENECA-2011SE75577

PATIENT
  Age: 29 Year
  Sex: Male

DRUGS (1)
  1. SEROQUEL [Suspect]
     Indication: BIPOLAR DISORDER
     Dosage: 300 MG THROUGH 600 MG DAILY
     Route: 048

REACTIONS (3)
  - INSOMNIA [None]
  - TACHYPHRENIA [None]
  - SOMNOLENCE [None]
